FAERS Safety Report 8883829 (Version 1)
Quarter: 2012Q4

REPORT INFORMATION
  Report Type: 
  Country: US (occurrence: US)
  Receive Date: 20121102
  Receipt Date: 20121102
  Transmission Date: 20130627
  Serious: No
  Sender: FDA-Public Use
  Company Number: US-ASTRAZENECA-2012SE08236

PATIENT
  Age: 65 Year
  Sex: Female

DRUGS (3)
  1. CRESTOR [Suspect]
     Route: 048
  2. CRESTOR [Suspect]
     Route: 048
  3. SYMBICORT PMDI [Suspect]
     Route: 055

REACTIONS (6)
  - Eye pruritus [Unknown]
  - Eye pain [Unknown]
  - Pain in extremity [Unknown]
  - Rash [Unknown]
  - Pruritus generalised [Unknown]
  - Headache [Unknown]
